FAERS Safety Report 24604315 (Version 2)
Quarter: 2024Q4

REPORT INFORMATION
  Report Type: Spontaneous
  Country: US (occurrence: US)
  Receive Date: 20241111
  Receipt Date: 20241127
  Transmission Date: 20250114
  Serious: Yes (Life-Threatening, Hospitalization, Disabling, Other)
  Sender: SANDOZ
  Company Number: US-SANDOZ-SDZ2024US093901

PATIENT
  Age: 55 Year
  Sex: Female
  Weight: 53 kg

DRUGS (27)
  1. FLUOROURACIL [Suspect]
     Active Substance: FLUOROURACIL
     Dosage: 3648 MG CYCLIC (CXD1,D15,D29, IV CONT.
     Route: 042
     Dates: start: 20240404, end: 20240718
  2. FLUOROURACIL [Suspect]
     Active Substance: FLUOROURACIL
     Dosage: CYCLIC (CX1,15,29, ANABIOSIS, IV CONT.)
     Route: 042
     Dates: start: 20240813
  3. FLUOROURACIL [Suspect]
     Active Substance: FLUOROURACIL
     Indication: Colorectal cancer
     Dosage: 608 MG, (CXD1,D15,D29, IV BOLUS),
     Route: 040
     Dates: start: 20240404, end: 20240718
  4. FLUOROURACIL [Suspect]
     Active Substance: FLUOROURACIL
     Dosage: 608 MG, CYCLIC CX1,15,29, ANABIOSIS, IV BOLUS
     Route: 040
     Dates: start: 20240813
  5. FLUOROURACIL [Suspect]
     Active Substance: FLUOROURACIL
     Dosage: UNK
     Route: 042
     Dates: start: 202408
  6. FLUOROURACIL [Suspect]
     Active Substance: FLUOROURACIL
     Dosage: UNK
     Route: 065
     Dates: start: 20241022
  7. LEUCOVORIN [Suspect]
     Active Substance: LEUCOVORIN\LEUCOVORIN CALCIUM
     Dosage: 608 MG,  CYCLIC  (CXD1,D15,D29)
     Route: 065
     Dates: start: 20240404
  8. LEUCOVORIN [Suspect]
     Active Substance: LEUCOVORIN\LEUCOVORIN CALCIUM
     Indication: Colorectal cancer
     Dosage: CXD1,D15,D29, 04-NOV-2024
     Route: 042
  9. OXALIPLATIN [Suspect]
     Active Substance: OXALIPLATIN
     Indication: Colorectal cancer
     Dosage: CYCLIC EVERY DAY 1, 15 AND 29 (CXD1,D15,D29),
     Route: 042
     Dates: start: 20240404
  10. OXALIPLATIN [Suspect]
     Active Substance: OXALIPLATIN
     Dosage: UNK
     Route: 065
     Dates: start: 20241022
  11. TRASTUZUMAB [Suspect]
     Active Substance: TRASTUZUMAB
     Indication: Colorectal cancer
     Dosage: 318 MG, CYCLIC EVERY DAY 1 AND 22 (CXDAY 1, 22),
     Route: 042
     Dates: start: 20240404, end: 20241105
  12. TUCATINIB [Suspect]
     Active Substance: TUCATINIB
     Dosage: 150 MG, QD, 2X2
     Route: 048
     Dates: start: 20240404
  13. TUCATINIB [Suspect]
     Active Substance: TUCATINIB
     Indication: Colorectal cancer
     Dosage: UNK, 04-NOV-2024, BID,2X2 /DAILY
     Route: 048
  14. TUCATINIB [Suspect]
     Active Substance: TUCATINIB
     Dosage: UNK
     Route: 065
     Dates: start: 20241105
  15. Dexaton [Concomitant]
     Indication: Premedication
     Dosage: UNK
     Route: 065
     Dates: start: 20240404
  16. FLUOROURACIL ANABIOSIS [Concomitant]
     Indication: Colorectal cancer
     Dosage: UNK
     Route: 042
     Dates: start: 20240813
  17. DIMETHINDENE MALEATE [Concomitant]
     Active Substance: DIMETHINDENE MALEATE
     Indication: Premedication
     Dosage: UNK
     Route: 065
     Dates: start: 20240404
  18. INNOHEP [Concomitant]
     Active Substance: TINZAPARIN SODIUM
     Indication: Prophylaxis
     Dosage: UNK
     Route: 065
     Dates: start: 20240903
  19. LOPRESSOR [Concomitant]
     Active Substance: METOPROLOL TARTRATE
     Indication: Sinus tachycardia
     Dosage: UNK
     Route: 048
  20. METOPROLOL [Concomitant]
     Active Substance: METOPROLOL
     Indication: Product used for unknown indication
     Dosage: UNK
     Route: 065
     Dates: start: 20241104
  21. ONDA [Concomitant]
     Indication: Premedication
     Dosage: UNK
     Route: 042
     Dates: start: 20240404
  22. Opus [Concomitant]
     Indication: Product used for unknown indication
     Dosage: UNK
     Route: 065
     Dates: start: 202408
  23. ROCEPHIN [Concomitant]
     Active Substance: CEFTRIAXONE SODIUM
     Indication: Premedication
     Dosage: 2GX1
     Route: 042
  24. SOLU-MEDROL [Concomitant]
     Active Substance: METHYLPREDNISOLONE SODIUM SUCCINATE
     Dosage: 250 MG
     Route: 042
  25. SOLU-MEDROL [Concomitant]
     Active Substance: METHYLPREDNISOLONE SODIUM SUCCINATE
     Dosage: 50 MG
     Route: 042
  26. SOLU-MEDROL [Concomitant]
     Active Substance: METHYLPREDNISOLONE SODIUM SUCCINATE
     Indication: Premedication
     Dosage: UNK
     Route: 065
     Dates: start: 20240404
  27. TAGAMET [Concomitant]
     Active Substance: CIMETIDINE
     Indication: Premedication
     Dosage: UNK
     Route: 065
     Dates: start: 20240404

REACTIONS (6)
  - Bronchospasm [Recovered/Resolved with Sequelae]
  - Warm autoimmune haemolytic anaemia [Recovered/Resolved with Sequelae]
  - Anaemia [Not Recovered/Not Resolved]
  - Infusion related reaction [Recovered/Resolved with Sequelae]
  - COVID-19 [Recovered/Resolved]
  - Pulmonary embolism [Recovered/Resolved with Sequelae]

NARRATIVE: CASE EVENT DATE: 20240903
